FAERS Safety Report 7371306-1 (Version None)
Quarter: 2011Q1

REPORT INFORMATION
  Report Type: 
  Country: None (occurrence: None)
  Receive Date: 20110321
  Receipt Date: 20110321
  Transmission Date: 20110831
  Serious: No
  Sender: FDA-Public Use
  Company Number: None

PATIENT
  Age: 69 Year
  Sex: Male
  Weight: 77.1115 kg

DRUGS (2)
  1. AVODART [Suspect]
     Indication: PROSTATOMEGALY
     Dosage: 0.5 MG 1 X DAY PO
     Route: 048
     Dates: start: 20110306, end: 20110306
  2. AVODART [Suspect]
     Indication: PROSTATOMEGALY
     Dosage: 0.5 MG 1 X DAY PO
     Route: 048
     Dates: start: 20110224, end: 20110228

REACTIONS (1)
  - RENAL PAIN [None]
